FAERS Safety Report 4986553-3 (Version None)
Quarter: 2006Q2

REPORT INFORMATION
  Report Type: 
  Country: None (occurrence: None)
  Receive Date: 20060424
  Receipt Date: 20060411
  Transmission Date: 20061013
  Serious: Yes (Death, Hospitalization, Other)
  Sender: FDA-Public Use
  Company Number: HQWYE800912APR06

PATIENT
  Age: 70 Year
  Sex: Male
  Weight: 90 kg

DRUGS (1)
  1. MYLOTARG [Suspect]
     Indication: ACUTE MYELOID LEUKAEMIA
     Dosage: 18.9 MG 1X PER 1 DAY, INTRAVENOUS
     Route: 042
     Dates: start: 20051027, end: 20051027

REACTIONS (23)
  - ACUTE MYELOID LEUKAEMIA [None]
  - ASCITES [None]
  - CHILLS [None]
  - DISEASE PROGRESSION [None]
  - DIZZINESS [None]
  - DRUG INEFFECTIVE [None]
  - DYSPNOEA [None]
  - FEBRILE NEUTROPENIA [None]
  - FLUID OVERLOAD [None]
  - GRAFT VERSUS HOST DISEASE [None]
  - HAEMODIALYSIS [None]
  - HYPERTENSION [None]
  - HYPOTENSION [None]
  - INFUSION RELATED REACTION [None]
  - LIVER FUNCTION TEST ABNORMAL [None]
  - LUNG CONSOLIDATION [None]
  - MALIGNANT NEOPLASM PROGRESSION [None]
  - OXYGEN SATURATION DECREASED [None]
  - PULMONARY HAEMORRHAGE [None]
  - RENAL FAILURE [None]
  - STAPHYLOCOCCAL SEPSIS [None]
  - THROMBOTIC THROMBOCYTOPENIC PURPURA [None]
  - WEIGHT INCREASED [None]
